FAERS Safety Report 5441800-9 (Version None)
Quarter: 2007Q3

REPORT INFORMATION
  Report Type: 
  Country: None (occurrence: None)
  Receive Date: 20070904
  Receipt Date: 20070822
  Transmission Date: 20080115
  Serious: Yes (Other)
  Sender: FDA-Public Use
  Company Number: US-AMGEN-US239906

PATIENT
  Sex: Male

DRUGS (1)
  1. ENBREL [Suspect]
     Indication: RHEUMATOID ARTHRITIS
     Route: 064
     Dates: start: 20010101, end: 20030901

REACTIONS (4)
  - AUTISM [None]
  - ECHOLALIA [None]
  - SOCIAL PROBLEM [None]
  - SPEECH DISORDER [None]
